FAERS Safety Report 25472042 (Version 1)
Quarter: 2025Q2

REPORT INFORMATION
  Report Type: Spontaneous
  Country: DK (occurrence: DK)
  Receive Date: 20250624
  Receipt Date: 20250624
  Transmission Date: 20250717
  Serious: Yes (Other)
  Sender: Steriscience PTE
  Company Number: DK-STERISCIENCE B.V.-2025-ST-001190

PATIENT
  Age: 67 Year
  Sex: Male

DRUGS (21)
  1. MYCOPHENOLATE MOFETIL [Suspect]
     Active Substance: MYCOPHENOLATE MOFETIL
     Indication: Hepatitis
     Route: 065
  2. MYCOPHENOLATE MOFETIL [Suspect]
     Active Substance: MYCOPHENOLATE MOFETIL
     Indication: Acute hepatic failure
  3. MYCOPHENOLATE MOFETIL [Suspect]
     Active Substance: MYCOPHENOLATE MOFETIL
     Indication: Acute hepatic failure
  4. METHYLPREDNISOLONE [Suspect]
     Active Substance: METHYLPREDNISOLONE
     Indication: Hepatitis
     Route: 065
  5. METHYLPREDNISOLONE [Suspect]
     Active Substance: METHYLPREDNISOLONE
     Indication: Acute hepatic failure
  6. METHYLPREDNISOLONE [Suspect]
     Active Substance: METHYLPREDNISOLONE
     Indication: Acute hepatic failure
  7. PREDNISOLONE [Concomitant]
     Active Substance: PREDNISOLONE
     Indication: Hepatitis
     Route: 065
  8. PREDNISOLONE [Concomitant]
     Active Substance: PREDNISOLONE
     Indication: Acute hepatic failure
  9. PREDNISOLONE [Concomitant]
     Active Substance: PREDNISOLONE
     Indication: Acute hepatic failure
  10. CARBOPLATIN [Concomitant]
     Active Substance: CARBOPLATIN
     Indication: Lung cancer metastatic
     Route: 065
  11. CARBOPLATIN [Concomitant]
     Active Substance: CARBOPLATIN
     Indication: Metastases to bone
     Route: 065
  12. CARBOPLATIN [Concomitant]
     Active Substance: CARBOPLATIN
     Indication: Metastases to liver
  13. CARBOPLATIN [Concomitant]
     Active Substance: CARBOPLATIN
     Indication: Metastases to peritoneum
  14. PEMETREXED [Concomitant]
     Active Substance: PEMETREXED
     Indication: Lung cancer metastatic
     Route: 065
  15. PEMETREXED [Concomitant]
     Active Substance: PEMETREXED
     Indication: Metastases to bone
     Route: 065
  16. PEMETREXED [Concomitant]
     Active Substance: PEMETREXED
     Indication: Metastases to liver
  17. PEMETREXED [Concomitant]
     Active Substance: PEMETREXED
     Indication: Metastases to peritoneum
  18. PEMBROLIZUMAB [Concomitant]
     Active Substance: PEMBROLIZUMAB
     Indication: Lung cancer metastatic
     Route: 065
  19. PEMBROLIZUMAB [Concomitant]
     Active Substance: PEMBROLIZUMAB
     Indication: Metastases to bone
  20. PEMBROLIZUMAB [Concomitant]
     Active Substance: PEMBROLIZUMAB
     Indication: Metastases to liver
  21. PEMBROLIZUMAB [Concomitant]
     Active Substance: PEMBROLIZUMAB
     Indication: Metastases to peritoneum

REACTIONS (3)
  - Hepatic encephalopathy [Unknown]
  - Condition aggravated [Unknown]
  - Off label use [Unknown]
